FAERS Safety Report 4957887-3 (Version None)
Quarter: 2006Q1

REPORT INFORMATION
  Report Type: 
  Country: None (occurrence: None)
  Receive Date: 20060330
  Receipt Date: 20060303
  Transmission Date: 20060701
  Serious: Yes (Hospitalization)
  Sender: FDA-Public Use
  Company Number: 2006UW03696

PATIENT
  Age: 15568 Day
  Sex: Female
  Weight: 63 kg

DRUGS (3)
  1. IRESSA [Suspect]
     Indication: BREAST CANCER
     Route: 048
     Dates: end: 20060302
  2. TAXOTERE [Suspect]
     Indication: BREAST CANCER
     Route: 042
     Dates: end: 20060228
  3. HERCEPTIN [Suspect]
     Indication: BREAST CANCER
     Route: 042
     Dates: end: 20060228

REACTIONS (3)
  - ABDOMINAL DISCOMFORT [None]
  - DIARRHOEA [None]
  - VOMITING [None]
